FAERS Safety Report 15154335 (Version 4)
Quarter: 2019Q2

REPORT INFORMATION
  Report Type: Spontaneous
  Country: IT (occurrence: IT)
  Receive Date: 20180717
  Receipt Date: 20190516
  Transmission Date: 20190711
  Serious: Yes (Hospitalization)
  Sender: FDA-Public Use
  Company Number: IT-ELI_LILLY_AND_COMPANY-IT201807004229

PATIENT
  Age: 41 Year
  Sex: Female

DRUGS (4)
  1. OLANZAPINE. [Suspect]
     Active Substance: OLANZAPINE
     Indication: PRODUCT USED FOR UNKNOWN INDICATION
     Dosage: UNK UNK, UNKNOWN
     Route: 048
     Dates: start: 20180611, end: 20180611
  2. LYRICA [Suspect]
     Active Substance: PREGABALIN
     Indication: PRODUCT USED FOR UNKNOWN INDICATION
     Dosage: UNK UNK, UNKNOWN
     Route: 048
     Dates: start: 20180611, end: 20180611
  3. SYNFLEX [NAPROXEN SODIUM] [Suspect]
     Active Substance: NAPROXEN SODIUM
     Indication: PRODUCT USED FOR UNKNOWN INDICATION
     Dosage: UNK UNK, UNKNOWN
     Route: 048
     Dates: start: 20180611, end: 20180611
  4. DULOXETINE HYDROCHLORIDE. [Suspect]
     Active Substance: DULOXETINE HYDROCHLORIDE
     Indication: PRODUCT USED FOR UNKNOWN INDICATION
     Dosage: UNK UNK, UNKNOWN
     Route: 048
     Dates: start: 20180611, end: 20180611

REACTIONS (4)
  - Drug abuse [Recovered/Resolved]
  - Confusional state [Recovered/Resolved]
  - Agitation [Recovered/Resolved]
  - Suicide attempt [Recovered/Resolved]

NARRATIVE: CASE EVENT DATE: 20180611
